FAERS Safety Report 10194606 (Version 1)
Quarter: 2014Q2

REPORT INFORMATION
  Report Type: Spontaneous
  Country: US (occurrence: US)
  Receive Date: 20140526
  Receipt Date: 20140526
  Transmission Date: 20141212
  Serious: No
  Sender: FDA-Public Use
  Company Number: US-BIOGENIDEC-2014BI044653

PATIENT
  Age: 56 Year
  Sex: Female

DRUGS (4)
  1. TECFIDERA [Suspect]
     Indication: MULTIPLE SCLEROSIS
     Route: 048
     Dates: start: 20140225
  2. LEVOTHYROXINE SODIUM [Concomitant]
  3. OMEGA 3 [Concomitant]
  4. BACLOFEN [Concomitant]

REACTIONS (2)
  - Decreased appetite [Unknown]
  - Abdominal discomfort [Recovered/Resolved]
